FAERS Safety Report 24263111 (Version 1)
Quarter: 2024Q3

REPORT INFORMATION
  Report Type: Spontaneous
  Country: CN (occurrence: CN)
  Receive Date: 20240829
  Receipt Date: 20240829
  Transmission Date: 20241016
  Serious: Yes (Death, Other)
  Sender: PFIZER
  Company Number: CN-PFIZER INC-PV202400111057

PATIENT
  Sex: Male

DRUGS (1)
  1. XYNTHA [Suspect]
     Active Substance: ANTIHEMOPHILIC FACTOR, HUMAN RECOMBINANT RESIDUES 743-1636 DELETED
     Dosage: 1500 IU, AS NEEDED
     Route: 042
     Dates: start: 20221011

REACTIONS (1)
  - Cerebral haemorrhage [Fatal]
